FAERS Safety Report 6072625-1 (Version None)
Quarter: 2009Q1

REPORT INFORMATION
  Report Type: 
  Country: None (occurrence: None)
  Receive Date: 20090210
  Receipt Date: 20081210
  Transmission Date: 20090719
  Serious: Yes (Death)
  Sender: FDA-Public Use
  Company Number: DE-PFIZER INC-2008152846

PATIENT

DRUGS (23)
  1. LONOLOX [Suspect]
     Indication: HYPERTENSION
     Dosage: 1/2 OF 10MG, 1X/DAY
     Route: 048
     Dates: start: 20060416, end: 20060514
  2. AUGMENTIN '125' [Suspect]
     Indication: INFECTION PROPHYLAXIS
     Dosage: 2.2 MG, 1X/DAY
     Route: 042
     Dates: start: 20060508, end: 20060508
  3. ACETYLCYSTEINE [Suspect]
     Indication: SECRETION DISCHARGE
     Dosage: 600 MG, 1X/DAY
     Route: 048
     Dates: start: 20060416, end: 20060514
  4. LASIX [Suspect]
     Indication: RENAL FAILURE
     Dosage: 40 MG, 1X/DAY
     Route: 048
     Dates: start: 20060416, end: 20060514
  5. PANTOZOL [Suspect]
     Indication: GASTRITIS PROPHYLAXIS
     Dosage: 40 MG, 2X/DAY
     Route: 048
     Dates: start: 20060416, end: 20060514
  6. CALCIMAGON [Suspect]
     Indication: HYPERPARATHYROIDISM SECONDARY
     Dosage: 500 MG, 3X/DAY
     Route: 048
     Dates: start: 20060416, end: 20060514
  7. BONDIOL [Suspect]
     Indication: HYPERPARATHYROIDISM SECONDARY
     Dosage: 0.25 MG, 1X/DAY
     Route: 048
     Dates: start: 20060416, end: 20060514
  8. THYRONAJOD [Suspect]
     Indication: IODINE DEFICIENCY
     Dosage: 100 MG, 1X/DAY
     Route: 048
     Dates: start: 20060416, end: 20060514
  9. XIPAMIDE [Suspect]
     Indication: HYPERTENSION
     Dosage: 20 MG, 1X/DAY
     Route: 048
     Dates: start: 20060418, end: 20060514
  10. SANDOSTATIN [Suspect]
     Indication: PANCREATITIS
     Dosage: 3X1 INJECTION DAILY
     Route: 058
     Dates: start: 20060420, end: 20060504
  11. LISINOPRIL [Suspect]
     Indication: HYPERTENSION
     Dosage: 5 MG, 2X/DAY
     Route: 048
     Dates: start: 20060424, end: 20060514
  12. BISOPROLOL [Suspect]
     Indication: HYPERTENSION
     Dosage: 5 MG, 1X/DAY
     Route: 048
     Dates: start: 20060424, end: 20060514
  13. OXAZEPAM [Suspect]
     Indication: SEDATION
     Dosage: 10 MG, SINGLE
     Dates: start: 20060508, end: 20060508
  14. CLORAZEPATE DIPOTASSIUM [Suspect]
     Indication: SEDATION
     Dosage: 10 MG, SINGLE
     Route: 048
     Dates: start: 20060508, end: 20060508
  15. PARACETAMOL [Suspect]
     Indication: PYREXIA
     Dosage: 1 G, 1X/DAY
     Route: 042
     Dates: start: 20060508, end: 20060509
  16. SODIUM CHLORIDE [Suspect]
     Indication: FLUID REPLACEMENT
     Dosage: 1000 ML, 1X/DAY
     Dates: start: 20060411, end: 20060417
  17. SODIUM CHLORIDE [Suspect]
     Dosage: 500 ML, 1X/DAY
     Route: 042
     Dates: start: 20060508, end: 20060509
  18. SODIUM BICARBONATE [Suspect]
     Indication: BLOOD BICARBONATE DECREASED
     Dosage: UNK
     Route: 048
     Dates: start: 20060416, end: 20060514
  19. DREISAVIT [Suspect]
     Indication: VITAMIN B COMPLEX DEFICIENCY
     Dosage: UNK
     Dates: start: 20060417, end: 20060514
  20. NEPHROTRANS [Suspect]
     Indication: ELECTROLYTE SUBSTITUTION THERAPY
     Dosage: 1000 ML, 1X/DAY
     Route: 042
     Dates: start: 20060424, end: 20060503
  21. VANCOMYCIN [Concomitant]
     Indication: SEPSIS
     Dosage: 1 G, 1X/DAY
     Route: 017
     Dates: start: 20060420, end: 20060420
  22. VANCOMYCIN [Concomitant]
     Dosage: 1 G, 1X/DAY
     Route: 017
     Dates: start: 20060425, end: 20060425
  23. VANCOMYCIN [Concomitant]
     Dosage: 1 G, 1X/DAY
     Route: 042
     Dates: start: 20060430, end: 20060430

REACTIONS (1)
  - STEVENS-JOHNSON SYNDROME [None]
